FAERS Safety Report 9157937 (Version 1)
Quarter: 2013Q1

REPORT INFORMATION
  Report Type: Spontaneous
  Country: GB (occurrence: None)
  Receive Date: 20130212
  Receipt Date: 20130212
  Transmission Date: 20140127
  Serious: Yes (Other)
  Sender: FDA-Public Use
  Company Number: 2012-14363

PATIENT
  Sex: Female

DRUGS (2)
  1. MIRTAZAPINE [Suspect]
     Indication: DEPRESSION
     Dates: start: 201111, end: 201201
  2. SERTRALINE (SERTRALINE) [Concomitant]

REACTIONS (26)
  - Hyperhidrosis [None]
  - Pyrexia [None]
  - Paraesthesia [None]
  - Anxiety [None]
  - Withdrawal syndrome [None]
  - Decreased appetite [None]
  - Oropharyngeal pain [None]
  - Pharyngeal oedema [None]
  - Sensation of foreign body [None]
  - Gastrointestinal disorder [None]
  - Jaw disorder [None]
  - Eye pain [None]
  - Tremor [None]
  - Nervousness [None]
  - Insomnia [None]
  - Pruritus [None]
  - Tongue disorder [None]
  - Chapped lips [None]
  - Burning sensation [None]
  - Arthralgia [None]
  - Dysphagia [None]
  - Weight decreased [None]
  - Tongue blistering [None]
  - Dizziness [None]
  - Dry throat [None]
  - Malocclusion [None]
